FAERS Safety Report 14382274 (Version 1)
Quarter: 2018Q1

REPORT INFORMATION
  Report Type: Spontaneous
  Country: US (occurrence: US)
  Receive Date: 20180112
  Receipt Date: 20180112
  Transmission Date: 20180509
  Serious: Yes (Other)
  Sender: FDA-Public Use
  Company Number: US-PROCTER+GAMBLE-GS18002032

PATIENT

DRUGS (2)
  1. DAYQUIL NOS [Suspect]
     Active Substance: ACETAMINOPHEN\BROMPHENIRAMINE\CHLORPHENIRAMINE\DEXTROMETHORPHAN\GUAIFENESIN\IBUPROFEN\PHENYLEPHRINE\PHENYLPROPANOLAMINE\PSEUDOEPHEDRINE
     Dosage: 1 UNK, 1 ONLY
     Route: 048
  2. NYQUIL NOS [Suspect]
     Active Substance: ACETAMINOPHEN\CHLORPHENIRAMINE\DEXTROMETHORPHAN\DIPHENHYDRAMINE\DOXYLAMINE\PSEUDOEPHEDRINE
     Dosage: 1 UNK, 1 ONLY
     Route: 048

REACTIONS (3)
  - Inappropriate schedule of drug administration [Unknown]
  - Cerebral haemorrhage [Unknown]
  - Ill-defined disorder [Unknown]
